FAERS Safety Report 6145097-6 (Version None)
Quarter: 2009Q2

REPORT INFORMATION
  Report Type: 
  Country: None (occurrence: None)
  Receive Date: 20090406
  Receipt Date: 20090213
  Transmission Date: 20091009
  Serious: No
  Sender: FDA-Public Use
  Company Number: A0768470A

PATIENT
  Age: 62 Year
  Sex: Male

DRUGS (6)
  1. ADVAIR HFA [Suspect]
     Indication: ASTHMA
     Dosage: 2PUFF PER DAY
     Route: 055
     Dates: end: 20090207
  2. ATENOLOL [Concomitant]
  3. BENICAR [Concomitant]
  4. LIPITOR [Concomitant]
  5. PRILOSEC [Concomitant]
  6. SYNTHROID [Concomitant]

REACTIONS (5)
  - EYE SWELLING [None]
  - NECK PAIN [None]
  - OROPHARYNGEAL PAIN [None]
  - SWELLING FACE [None]
  - THROAT TIGHTNESS [None]
